FAERS Safety Report 13801936 (Version 1)
Quarter: 2017Q3

REPORT INFORMATION
  Report Type: Spontaneous
  Country: US (occurrence: US)
  Receive Date: 20170727
  Receipt Date: 20170727
  Transmission Date: 20171127
  Serious: No
  Sender: FDA-Public Use
  Company Number: US-TAKEDA-2017TUS015417

PATIENT
  Age: 20 Year
  Sex: Female

DRUGS (1)
  1. ENTYVIO [Suspect]
     Active Substance: VEDOLIZUMAB
     Indication: CROHN^S DISEASE
     Dosage: 300 MG, UNK
     Route: 042
     Dates: start: 201508

REACTIONS (4)
  - Peripheral coldness [Recovered/Resolved]
  - Cyanosis [Recovered/Resolved]
  - Dysphagia [Unknown]
  - Vitamin D deficiency [Unknown]

NARRATIVE: CASE EVENT DATE: 201705
